FAERS Safety Report 22028968 (Version 1)
Quarter: 2023Q1

REPORT INFORMATION
  Report Type: Spontaneous
  Country: ES (occurrence: ES)
  Receive Date: 20230223
  Receipt Date: 20230223
  Transmission Date: 20230418
  Serious: Yes (Hospitalization)
  Sender: FDA-Public Use
  Company Number: None

PATIENT
  Age: 66 Year
  Sex: Female

DRUGS (4)
  1. DOCETAXEL [Suspect]
     Active Substance: DOCETAXEL
     Indication: Product used for unknown indication
     Dosage: 130MG , DOCETAXEL (7394A)
     Dates: start: 20220920, end: 20220920
  2. CARBOPLATIN [Suspect]
     Active Substance: CARBOPLATIN
     Indication: Product used for unknown indication
     Dosage: 500 MG  , CARBOPLATINO (2323A)
     Dates: start: 20220920, end: 20220920
  3. HERCEPTIN [Suspect]
     Active Substance: TRASTUZUMAB
     Indication: Product used for unknown indication
     Dosage: 400MG , SOLUTION FOR INJECTION IN VIAL, PACK OF 1 VIAL CONTAINING 600 MG/5 ML OF TRASTUZUMAB
     Dates: start: 20220920, end: 20220920
  4. PERJETA [Suspect]
     Active Substance: PERTUZUMAB
     Indication: Product used for unknown indication
     Dosage: 420MG , 1 VIAL OF 14 ML
     Dates: start: 20220920, end: 20220920

REACTIONS (1)
  - Febrile neutropenia [Recovered/Resolved]

NARRATIVE: CASE EVENT DATE: 20220927
